FAERS Safety Report 8862829 (Version 1)
Quarter: 2012Q4

REPORT INFORMATION
  Report Type: 
  Country: US (occurrence: US)
  Receive Date: 20121026
  Receipt Date: 20121026
  Transmission Date: 20130627
  Serious: Yes (Hospitalization)
  Sender: FDA-Public Use
  Company Number: US-GLAXOSMITHKLINE-A0867475A

PATIENT
  Age: 56 Year
  Sex: Female
  Weight: 84 kg

DRUGS (1)
  1. AVANDIA [Suspect]
     Indication: DIABETES MELLITUS
     Dosage: 4MG Per day
     Route: 048
     Dates: start: 20050331, end: 20071228

REACTIONS (11)
  - Myocardial infarction [Not Recovered/Not Resolved]
  - Myocardial infarction [Unknown]
  - Myocardial infarction [Unknown]
  - Cardiac aneurysm [Unknown]
  - Cardiac failure congestive [Unknown]
  - Scar [Unknown]
  - Coronary arterial stent insertion [Unknown]
  - Coronary artery bypass [Unknown]
  - Intra-aortic balloon placement [Unknown]
  - Implantable defibrillator insertion [Unknown]
  - Surgery [Unknown]
